FAERS Safety Report 16330562 (Version 2)
Quarter: 2019Q2

REPORT INFORMATION
  Report Type: Spontaneous
  Country: US (occurrence: US)
  Receive Date: 20190520
  Receipt Date: 20190626
  Transmission Date: 20190711
  Serious: No
  Sender: FDA-Public Use
  Company Number: PHEH2019US020763

PATIENT
  Sex: Female

DRUGS (2)
  1. DUREZOL [Concomitant]
     Active Substance: DIFLUPREDNATE
     Indication: PRODUCT USED FOR UNKNOWN INDICATION
     Dosage: 5 %, QD
     Route: 047
  2. ILEVRO [Suspect]
     Active Substance: NEPAFENAC
     Indication: PRODUCT USED FOR UNKNOWN INDICATION
     Dosage: 0.3 %, QD
     Route: 047
     Dates: start: 20190326

REACTIONS (4)
  - Product quality issue [Unknown]
  - Eyelid margin crusting [Unknown]
  - Product use complaint [Unknown]
  - Accidental exposure to product [Unknown]
